FAERS Safety Report 22606077 (Version 1)
Quarter: 2023Q2

REPORT INFORMATION
  Report Type: Other
  Country: US (occurrence: None)
  Receive Date: 20230615
  Receipt Date: 20230615
  Transmission Date: 20230722
  Serious: Yes (Death, Other)
  Sender: FDA-Public Use
  Company Number: US-ROCHE-3369124

PATIENT

DRUGS (8)
  1. RITUXIMAB [Suspect]
     Active Substance: RITUXIMAB
     Indication: Bone marrow conditioning regimen
     Dosage: ON DAYS 1 AND 4 AS PRIMING AND MOBILIZATION
     Route: 042
  2. RITUXIMAB [Suspect]
     Active Substance: RITUXIMAB
     Dosage: ON DAY -7 OF HSCT AS A CONDITIONING REGIMEN
     Route: 042
  3. METHYLPREDNISOLONE [Suspect]
     Active Substance: METHYLPREDNISOLONE
     Indication: Bone marrow conditioning regimen
     Dosage: ON DAY 1
     Route: 042
  4. CYCLOPHOSPHAMIDE [Suspect]
     Active Substance: CYCLOPHOSPHAMIDE
     Indication: Bone marrow conditioning regimen
     Dosage: ON DAY 2
     Route: 065
  5. CYCLOPHOSPHAMIDE [Suspect]
     Active Substance: CYCLOPHOSPHAMIDE
     Dosage: ON DAYS -6 TO -3
     Route: 065
  6. FLUDARABINE [Suspect]
     Active Substance: FLUDARABINE PHOSPHATE
     Indication: Bone marrow conditioning regimen
     Dosage: ON DAYS -6 TO -3
     Route: 065
  7. MESNA [Suspect]
     Active Substance: MESNA
     Indication: Bone marrow conditioning regimen
     Route: 065
  8. PREDNISONE [Suspect]
     Active Substance: PREDNISONE
     Indication: Bone marrow conditioning regimen
     Dosage: {/=10MG PREDNISONE/DAY AT 6 MONTHS AND {/=5 MG/DAY AT 12 MONTHS
     Route: 065

REACTIONS (50)
  - Peripheral sensory neuropathy [Unknown]
  - Peripheral motor neuropathy [Unknown]
  - Hydrocephalus [Unknown]
  - Encephalopathy [Unknown]
  - Febrile neutropenia [Unknown]
  - Device related infection [Unknown]
  - Bronchopulmonary aspergillosis [Unknown]
  - Pneumonia influenzal [Unknown]
  - Pneumonia klebsiella [Unknown]
  - Listeraemia [Unknown]
  - Pneumocystis jirovecii pneumonia [Unknown]
  - Gastroenteritis Escherichia coli [Unknown]
  - Urinary tract infection bacterial [Unknown]
  - Staphylococcal bacteraemia [Unknown]
  - Pneumatosis [Unknown]
  - Decreased appetite [Unknown]
  - Diarrhoea [Unknown]
  - Nausea [Unknown]
  - Vomiting [Unknown]
  - Pneumonitis [Unknown]
  - Dyspnoea [Unknown]
  - Hypoxia [Unknown]
  - Retinopathy [Unknown]
  - Vision blurred [Unknown]
  - Purpura [Unknown]
  - Thrombocytopenia [Unknown]
  - Leukopenia [Unknown]
  - Lymphopenia [Unknown]
  - Neutropenia [Unknown]
  - Anaemia [Unknown]
  - Activated partial thromboplastin time prolonged [Unknown]
  - Hypertension [Unknown]
  - Pericardial effusion [Unknown]
  - Atrioventricular block [Fatal]
  - Cardiac arrest [Fatal]
  - Hyperuricaemia [Unknown]
  - Hyperkalaemia [Unknown]
  - Hypocalcaemia [Unknown]
  - Hypophosphataemia [Unknown]
  - Hyponatraemia [Unknown]
  - Hypermagnesaemia [Unknown]
  - Amylase increased [Unknown]
  - Lipase increased [Unknown]
  - Alanine aminotransferase increased [Unknown]
  - Aspartate aminotransferase increased [Unknown]
  - Hypoalbuminaemia [Unknown]
  - Oedema peripheral [Unknown]
  - Sinusitis [Unknown]
  - Drug hypersensitivity [Unknown]
  - Bacterial colitis [Unknown]
